FAERS Safety Report 11049689 (Version 1)
Quarter: 2015Q2

REPORT INFORMATION
  Report Type: Spontaneous
  Country: US (occurrence: US)
  Receive Date: 20150420
  Receipt Date: 20150420
  Transmission Date: 20150821
  Serious: No
  Sender: FDA-Public Use
  Company Number: US-PURDUE-USA-2015-0120828

PATIENT
  Age: 35 Year
  Sex: Female

DRUGS (5)
  1. OXYCONTIN [Suspect]
     Active Substance: OXYCODONE HYDROCHLORIDE
     Indication: PAIN
     Dosage: 80 MG, Q6H
     Route: 048
     Dates: start: 2012, end: 201501
  2. FENTANYL. [Concomitant]
     Active Substance: FENTANYL
     Indication: PAIN
     Dosage: UNK
     Route: 062
     Dates: start: 201501, end: 201501
  3. OXYCODONE HCL IR CAPSULES [Suspect]
     Active Substance: OXYCODONE HYDROCHLORIDE
     Indication: BREAKTHROUGH PAIN
     Dosage: 60 MG, Q2H
     Route: 048
     Dates: start: 2012
  4. MORPHINE [Concomitant]
     Active Substance: MORPHINE
     Indication: PAIN
     Dosage: UNK
     Route: 048
     Dates: start: 201501, end: 201501
  5. SOMA [Concomitant]
     Active Substance: CARISOPRODOL
     Indication: NEURALGIA
     Dosage: UNK
     Route: 048

REACTIONS (6)
  - Initial insomnia [Unknown]
  - Back pain [Unknown]
  - Cold sweat [Unknown]
  - Drug ineffective [Unknown]
  - Toothache [Unknown]
  - Hyperhidrosis [Unknown]

NARRATIVE: CASE EVENT DATE: 201501
